FAERS Safety Report 24893100 (Version 2)
Quarter: 2025Q1

REPORT INFORMATION
  Report Type: Spontaneous
  Country: CA (occurrence: CA)
  Receive Date: 20250128
  Receipt Date: 20250131
  Transmission Date: 20250408
  Serious: Yes (Death, Hospitalization)
  Sender: ROCHE
  Company Number: CA-ROCHE-10000189548

PATIENT
  Age: 71 Year
  Sex: Male

DRUGS (9)
  1. MYCOPHENOLATE MOFETIL [Suspect]
     Active Substance: MYCOPHENOLATE MOFETIL
     Indication: Immunoglobulin G4 related disease
     Route: 048
  2. RITUXIMAB [Suspect]
     Active Substance: RITUXIMAB
     Indication: Immunoglobulin G4 related disease
     Route: 040
  3. PREDNISONE [Suspect]
     Active Substance: PREDNISONE
     Indication: Immunoglobulin G4 related disease
     Route: 048
  4. PREDNISONE [Suspect]
     Active Substance: PREDNISONE
     Route: 048
  5. PREDNISONE [Suspect]
     Active Substance: PREDNISONE
     Route: 048
  6. PREDNISONE [Suspect]
     Active Substance: PREDNISONE
     Route: 048
  7. PREDNISONE [Suspect]
     Active Substance: PREDNISONE
     Route: 048
  8. PREDNISONE [Suspect]
     Active Substance: PREDNISONE
     Route: 048
  9. MYCOPHENOLATE MOFETIL [Suspect]
     Active Substance: MYCOPHENOLATE MOFETIL
     Indication: Immunosuppressant drug therapy
     Route: 048

REACTIONS (4)
  - Disseminated strongyloidiasis [Fatal]
  - Pneumonia aspiration [Fatal]
  - Septic shock [Fatal]
  - Off label use [Fatal]
